FAERS Safety Report 5124611-3 (Version None)
Quarter: 2006Q4

REPORT INFORMATION
  Report Type: 
  Country: None (occurrence: None)
  Receive Date: 20061011
  Receipt Date: 20061002
  Transmission Date: 20070319
  Serious: Yes (Other)
  Sender: FDA-Public Use
  Company Number: IL-BAYER-200614379GDS

PATIENT
  Sex: Female

DRUGS (3)
  1. CARTIA XT [Suspect]
     Indication: HYPERCOAGULATION
     Route: 048
  2. FOLIC ACID [Concomitant]
     Indication: DRUG USE FOR UNKNOWN INDICATION
     Route: 065
  3. IRON SUPPLEMENT [Concomitant]
     Indication: DRUG USE FOR UNKNOWN INDICATION
     Route: 065

REACTIONS (10)
  - ABORTION INDUCED [None]
  - CONVULSION [None]
  - DRUG EXPOSURE DURING PREGNANCY [None]
  - FOETAL MALFORMATION [None]
  - HELLP SYNDROME [None]
  - HYPOGLYCAEMIA [None]
  - PRE-ECLAMPSIA [None]
  - PREMATURE LABOUR [None]
  - TESTICULAR TORSION [None]
  - TRICUSPID VALVE INCOMPETENCE [None]
